FAERS Safety Report 15102911 (Version 3)
Quarter: 2019Q4

REPORT INFORMATION
  Report Type: Spontaneous
  Country: US (occurrence: US)
  Receive Date: 20180703
  Receipt Date: 20191002
  Transmission Date: 20200122
  Serious: Yes (Other)
  Sender: FDA-Public Use
  Company Number: US-SA-2018SA175635

PATIENT
  Age: 70 Year
  Sex: Female
  Weight: 68.03 kg

DRUGS (3)
  1. TAXOL [Concomitant]
     Active Substance: PACLITAXEL
     Indication: BREAST CANCER FEMALE
     Dosage: UNK UNK, UNK
     Route: 065
  2. TAXOTERE [Suspect]
     Active Substance: DOCETAXEL
     Indication: BREAST CANCER FEMALE
     Dosage: 135 U, Q3W
     Route: 042
     Dates: start: 20140101, end: 20140101
  3. TAXOTERE [Suspect]
     Active Substance: DOCETAXEL
     Dosage: 135 U, Q3W
     Route: 042
     Dates: start: 20140424, end: 20140424

REACTIONS (1)
  - Alopecia [Recovering/Resolving]

NARRATIVE: CASE EVENT DATE: 20140701
